FAERS Safety Report 8876284 (Version 1)
Quarter: 2012Q4

REPORT INFORMATION
  Report Type: 
  Country: BR (occurrence: BR)
  Receive Date: 20121023
  Receipt Date: 20121023
  Transmission Date: 20130627
  Serious: Yes (Death, Other)
  Sender: FDA-Public Use
  Company Number: BR-009507513-1210BRA010463

PATIENT
  Age: 49 Year
  Sex: Male

DRUGS (7)
  1. METICORTEN [Suspect]
     Indication: RENAL AND PANCREAS TRANSPLANT
     Route: 048
  2. TACROLIMUS [Concomitant]
     Indication: RENAL AND PANCREAS TRANSPLANT
  3. MYCOPHENOLATE MOFETIL [Concomitant]
     Indication: RENAL AND PANCREAS TRANSPLANT
  4. CILASTATIN SODIUM\IMIPENEM [Suspect]
  5. VANCOMYCIN [Concomitant]
  6. POLYMYXIN [Concomitant]
  7. BASILIXIMAB [Concomitant]
     Indication: RENAL AND PANCREAS TRANSPLANT

REACTIONS (6)
  - Septic shock [Fatal]
  - Cardio-respiratory arrest [Recovered/Resolved]
  - Dermatitis bullous [Unknown]
  - Necrotising fasciitis [Unknown]
  - Skin necrosis [Unknown]
  - Acinetobacter test positive [None]
